FAERS Safety Report 5156077-1 (Version None)
Quarter: 2006Q4

REPORT INFORMATION
  Report Type: 
  Country: None (occurrence: None)
  Receive Date: 20061114
  Receipt Date: 20061030
  Transmission Date: 20070319
  Serious: Yes (Death)
  Sender: FDA-Public Use
  Company Number: CERZ-11378

PATIENT
  Age: 22 Month
  Sex: Male
  Weight: 3.2 kg

DRUGS (4)
  1. CEREZYME [Suspect]
     Indication: GAUCHER'S DISEASE
     Dosage: 400 UNITS QWK IV
     Route: 042
     Dates: start: 20050211, end: 20060101
  2. ZANTAC [Concomitant]
  3. REGLAN [Concomitant]
  4. LAMICTAL [Concomitant]

REACTIONS (1)
  - CARDIAC FAILURE [None]
